FAERS Safety Report 23629152 (Version 1)
Quarter: 2024Q1

REPORT INFORMATION
  Report Type: Spontaneous
  Country: CN (occurrence: CN)
  Receive Date: 20240313
  Receipt Date: 20240313
  Transmission Date: 20240410
  Serious: Yes (Hospitalization)
  Sender: FDA-Public Use
  Company Number: CN-Eisai-EC-2024-161274

PATIENT
  Age: 52 Year
  Sex: Female
  Weight: 49 kg

DRUGS (6)
  1. ERIBULIN [Suspect]
     Active Substance: ERIBULIN
     Indication: Liposarcoma recurrent
     Route: 042
     Dates: start: 20240222
  2. ERIBULIN [Suspect]
     Active Substance: ERIBULIN
     Indication: Liposarcoma metastatic
  3. CAMRELIZUMAB [Suspect]
     Active Substance: CAMRELIZUMAB
     Indication: Liposarcoma recurrent
     Route: 042
     Dates: start: 20240222
  4. CAMRELIZUMAB [Suspect]
     Active Substance: CAMRELIZUMAB
     Indication: Liposarcoma metastatic
  5. LENVATINIB MESYLATE [Concomitant]
     Active Substance: LENVATINIB MESYLATE
     Indication: Liposarcoma recurrent
     Route: 048
     Dates: start: 20240222, end: 20240306
  6. LENVATINIB MESYLATE [Concomitant]
     Active Substance: LENVATINIB MESYLATE
     Indication: Liposarcoma metastatic

REACTIONS (1)
  - Myelosuppression [Recovering/Resolving]

NARRATIVE: CASE EVENT DATE: 20240228
